FAERS Safety Report 21791111 (Version 1)
Quarter: 2022Q4

REPORT INFORMATION
  Report Type: Spontaneous
  Country: US (occurrence: US)
  Receive Date: 20221228
  Receipt Date: 20221228
  Transmission Date: 20230112
  Serious: No
  Sender: FDA-Public Use
  Company Number: US-CLOVIS ONCOLOGY-CLO-2022-001003

PATIENT
  Sex: Female

DRUGS (3)
  1. RUBRACA [Suspect]
     Active Substance: RUCAPARIB CAMSYLATE
     Indication: Fallopian tube cancer
     Dosage: 500 MILLIGRAM, BID
     Route: 048
     Dates: start: 20220331, end: 20220613
  2. RUBRACA [Suspect]
     Active Substance: RUCAPARIB CAMSYLATE
     Dosage: 500 MILLIGRAM, QD
     Route: 048
     Dates: start: 20220613, end: 202208
  3. RUBRACA [Suspect]
     Active Substance: RUCAPARIB CAMSYLATE
     Dosage: 500 MILLIGRAM, QD
     Route: 048
     Dates: start: 20220906, end: 202211

REACTIONS (1)
  - Adverse event [Not Recovered/Not Resolved]
